FAERS Safety Report 7620570-X (Version None)
Quarter: 2011Q3

REPORT INFORMATION
  Report Type: 
  Country: None (occurrence: None)
  Receive Date: 20110719
  Receipt Date: 20110713
  Transmission Date: 20111222
  Serious: Yes (Other)
  Sender: FDA-Public Use
  Company Number: US-ROCHE-780524

PATIENT
  Sex: Male
  Weight: 74.8 kg

DRUGS (3)
  1. CLINORIL [Concomitant]
  2. BONIVA [Suspect]
     Indication: OSTEOPOROSIS
     Route: 048
     Dates: start: 20100601
  3. METFORMIN HCL [Concomitant]

REACTIONS (1)
  - BACK INJURY [None]
